FAERS Safety Report 8888409 (Version 1)
Quarter: 2012Q4

REPORT INFORMATION
  Report Type: 
  Country: US (occurrence: US)
  Receive Date: 20121106
  Receipt Date: 20121106
  Transmission Date: 20130627
  Serious: No
  Sender: FDA-Public Use
  Company Number: US-PFIZER INC-2012266692

PATIENT
  Age: 72 Year
  Sex: Male
  Weight: 64.18 kg

DRUGS (11)
  1. INLYTA [Suspect]
     Dosage: 5 mg, 2x/day
     Route: 048
     Dates: start: 20121010
  2. INLYTA [Suspect]
     Dosage: 10 mg, 2x/day
     Route: 048
  3. TYLENOL [Concomitant]
     Dosage: Take 500-1,000 mg, as needed
     Route: 048
  4. ZOFRAN [Concomitant]
     Dosage: 1tablet 8mg,3 times daily as needed
     Route: 048
  5. ROXICODONE [Concomitant]
     Indication: BREAKTHROUGH PAIN
     Dosage: 1 tablet 5 mg every 4 hours as needed
  6. ULTRAM [Concomitant]
     Dosage: 1 tablet 50 mg every 6 hours , as needed
     Route: 048
  7. DURAGESIC [Concomitant]
     Indication: PAIN
     Dosage: 25 mcg/hr/patch patch, 1 patch topically every 72 hours
     Route: 062
     Dates: start: 20121019
  8. DECADRON [Concomitant]
     Indication: BACK PAIN
     Dosage: 1 tablet 4 mg, every 12 hours
     Route: 048
  9. SENNA [Concomitant]
     Dosage: UNK, 2 times daily
     Route: 048
  10. GABAPENTIN [Concomitant]
     Dosage: 300 mg, 2x/day (twice daily)
  11. MS CONTIN [Concomitant]
     Dosage: UNK

REACTIONS (6)
  - Hiccups [Unknown]
  - Back pain [Recovering/Resolving]
  - Flank pain [Recovered/Resolved with Sequelae]
  - Pain in extremity [Recovering/Resolving]
  - Pain [Unknown]
  - Nausea [Unknown]
